FAERS Safety Report 16938725 (Version 2)
Quarter: 2020Q1

REPORT INFORMATION
  Report Type: Report from Study
  Country: GB (occurrence: GB)
  Receive Date: 20191020
  Receipt Date: 20200108
  Transmission Date: 20200409
  Serious: Yes (Other)
  Sender: FDA-Public Use
  Company Number: NVSC2019GB010933

PATIENT
  Sex: Male

DRUGS (2)
  1. METHOTREXATE. [Concomitant]
     Active Substance: METHOTREXATE
     Indication: PRODUCT USED FOR UNKNOWN INDICATION
     Dosage: UNK
     Route: 065
  2. COSENTYX [Suspect]
     Active Substance: SECUKINUMAB
     Indication: PSORIATIC ARTHROPATHY
     Dosage: 300 MG, 0,1,2,3 AND 4 AS DIRECTED
     Route: 058
     Dates: start: 20190828

REACTIONS (4)
  - Psoriatic arthropathy [Unknown]
  - Lower respiratory tract infection [Unknown]
  - Pruritus [Unknown]
  - Infection [Unknown]
